FAERS Safety Report 21248681 (Version 1)
Quarter: 2022Q3

REPORT INFORMATION
  Report Type: Spontaneous
  Country: US (occurrence: US)
  Receive Date: 20220824
  Receipt Date: 20220824
  Transmission Date: 20221027
  Serious: Yes (Other)
  Sender: FDA-Public Use
  Company Number: US-SA-SAC20220819000110

PATIENT
  Age: 63 Year
  Sex: Female

DRUGS (1)
  1. ZANTAC [Suspect]
     Active Substance: RANITIDINE HYDROCHLORIDE
     Indication: Gastrooesophageal reflux disease
     Dosage: 150 MG;QD
     Dates: start: 199506, end: 201812

REACTIONS (2)
  - Colorectal cancer stage III [Recovering/Resolving]
  - Uterine cancer [Recovering/Resolving]

NARRATIVE: CASE EVENT DATE: 20110901
